FAERS Safety Report 15835444 (Version 1)
Quarter: 2019Q1

REPORT INFORMATION
  Report Type: Spontaneous
  Country: NL (occurrence: NL)
  Receive Date: 20190117
  Receipt Date: 20190117
  Transmission Date: 20190417
  Serious: Yes (Other)
  Sender: FDA-Public Use
  Company Number: NL-AUROBINDO-AUR-APL-2019-000451

PATIENT
  Age: 43 Year
  Sex: Female
  Weight: 70 kg

DRUGS (2)
  1. CETIRIZINE FILM-COATED TABLETS [Suspect]
     Active Substance: CETIRIZINE HYDROCHLORIDE
     Indication: HYPERSENSITIVITY
     Dosage: 10 MILLIGRAM, DAILY
     Route: 048
     Dates: start: 20161017, end: 20161017
  2. PREDNISOLONE. [Concomitant]
     Active Substance: PREDNISOLONE
     Indication: HYPERSENSITIVITY
     Dosage: 20 MILLIGRAM, ONCE A DAY
     Route: 048
     Dates: start: 20161017

REACTIONS (2)
  - Dermatitis bullous [Not Recovered/Not Resolved]
  - Pruritus [Not Recovered/Not Resolved]

NARRATIVE: CASE EVENT DATE: 20161017
